FAERS Safety Report 19257466 (Version 1)
Quarter: 2021Q2

REPORT INFORMATION
  Report Type: Spontaneous
  Country: PL (occurrence: PL)
  Receive Date: 20210514
  Receipt Date: 20210514
  Transmission Date: 20210717
  Serious: Yes (Life-Threatening, Hospitalization)
  Sender: FDA-Public Use
  Company Number: PL-AUROBINDO-AUR-APL-2021-019184

PATIENT
  Sex: Female

DRUGS (1)
  1. MELPHALAN. [Suspect]
     Active Substance: MELPHALAN
     Indication: PLASMA CELL MYELOMA
     Dosage: 380 MILLIGRAM
     Route: 042
     Dates: start: 20160524, end: 20160524

REACTIONS (1)
  - Haematopoietic stem cell mobilisation [Recovering/Resolving]
